FAERS Safety Report 5321807-2 (Version None)
Quarter: 2007Q2

REPORT INFORMATION
  Report Type: 
  Country: None (occurrence: None)
  Receive Date: 20070510
  Receipt Date: 20070501
  Transmission Date: 20071010
  Serious: Yes (Other)
  Sender: FDA-Public Use
  Company Number: US-PFIZER INC-2007035966

PATIENT
  Sex: Male
  Weight: 131.81 kg

DRUGS (5)
  1. CHANTIX [Suspect]
     Indication: SMOKING CESSATION THERAPY
     Dates: start: 20070401, end: 20070401
  2. COUMADIN [Concomitant]
  3. INSULIN GLARGINE [Concomitant]
  4. LIPITOR [Concomitant]
  5. LASIX [Concomitant]

REACTIONS (3)
  - ABNORMAL DREAMS [None]
  - SLEEP TALKING [None]
  - SLEEP TERROR [None]
